FAERS Safety Report 8907002 (Version 2)
Quarter: 2012Q4

REPORT INFORMATION
  Report Type: Report from Study
  Country: JP (occurrence: JP)
  Receive Date: 20121114
  Receipt Date: 20121225
  Transmission Date: 20130627
  Serious: Yes (Hospitalization)
  Sender: FDA-Public Use
  Company Number: JP-JNJFOC-20121005678

PATIENT
  Age: 62 Year
  Sex: Female

DRUGS (29)
  1. SIMPONI [Suspect]
     Indication: RHEUMATOID ARTHRITIS
     Route: 058
     Dates: start: 20120807
  2. SIMPONI [Suspect]
     Indication: RHEUMATOID ARTHRITIS
     Route: 058
     Dates: start: 20120713
  3. SIMPONI [Suspect]
     Indication: RHEUMATOID ARTHRITIS
     Route: 058
     Dates: start: 20120612
  4. SIMPONI [Suspect]
     Indication: RHEUMATOID ARTHRITIS
     Route: 058
     Dates: start: 20120515
  5. SIMPONI [Suspect]
     Indication: RHEUMATOID ARTHRITIS
     Route: 058
     Dates: start: 20120417
  6. SIMPONI [Suspect]
     Indication: RHEUMATOID ARTHRITIS
     Route: 058
     Dates: start: 20120319
  7. SIMPONI [Suspect]
     Indication: RHEUMATOID ARTHRITIS
     Route: 058
     Dates: start: 20120221
  8. METHOTREXATE [Suspect]
     Indication: RHEUMATOID ARTHRITIS
     Route: 065
     Dates: start: 20120222, end: 20120418
  9. METHOTREXATE [Suspect]
     Indication: RHEUMATOID ARTHRITIS
     Route: 065
     Dates: start: 20120419
  10. RISPERDAL [Suspect]
     Indication: DEPRESSION
     Route: 048
     Dates: start: 20120412
  11. RISPERDAL [Suspect]
     Indication: DEPRESSION
     Route: 048
  12. RISPERDAL [Suspect]
     Indication: PSYCHIATRIC SYMPTOM
     Route: 048
  13. RISPERDAL [Suspect]
     Indication: PSYCHIATRIC SYMPTOM
     Route: 048
     Dates: start: 20120412
  14. DOGMATYL [Suspect]
     Indication: PRODUCT USED FOR UNKNOWN INDICATION
     Route: 065
  15. CYMBALTA [Suspect]
     Indication: PRODUCT USED FOR UNKNOWN INDICATION
     Route: 048
  16. BUCILLAMINE [Concomitant]
     Indication: RHEUMATOID ARTHRITIS
     Route: 048
     Dates: end: 20120221
  17. PREDNISOLONE [Concomitant]
     Indication: RHEUMATOID ARTHRITIS
     Route: 065
     Dates: start: 20120419
  18. PREDNISOLONE [Concomitant]
     Indication: RHEUMATOID ARTHRITIS
     Route: 065
     Dates: start: 20111130, end: 20120418
  19. LOXONIN [Concomitant]
     Indication: RHEUMATOID ARTHRITIS
     Route: 065
     Dates: start: 20120509
  20. VOLTAREN [Concomitant]
     Indication: RHEUMATOID ARTHRITIS
     Route: 054
     Dates: start: 20120509
  21. ZOLOFT [Concomitant]
     Indication: DEPRESSION
     Route: 048
  22. FOLIAMIN [Concomitant]
     Indication: PROPHYLAXIS
     Route: 065
  23. SENNOSIDE [Concomitant]
     Indication: CONSTIPATION
     Route: 048
  24. TAKEPRON [Concomitant]
     Indication: PROPHYLAXIS
     Route: 065
  25. EVAMYL [Concomitant]
     Indication: INSOMNIA
     Route: 048
  26. GASMOTIN [Concomitant]
     Indication: PROPHYLAXIS
     Route: 048
  27. MYSLEE [Concomitant]
     Indication: INSOMNIA
     Route: 048
  28. LEXOTAN [Concomitant]
     Indication: DEPRESSION
     Route: 048
  29. MAGLAX [Concomitant]
     Indication: CONSTIPATION

REACTIONS (5)
  - Psychiatric symptom [Recovered/Resolved]
  - Pruritus [Recovered/Resolved]
  - Alopecia [Recovering/Resolving]
  - Insomnia [Recovering/Resolving]
  - Injection site erythema [Recovering/Resolving]
